FAERS Safety Report 6422867-8 (Version None)
Quarter: 2009Q4

REPORT INFORMATION
  Report Type: 
  Country: None (occurrence: None)
  Receive Date: 20091102
  Receipt Date: 20091021
  Transmission Date: 20100525
  Serious: Yes (Hospitalization)
  Sender: FDA-Public Use
  Company Number: US-ROCHE-659992

PATIENT
  Sex: Female
  Weight: 78.9 kg

DRUGS (5)
  1. CAPECITABINE [Suspect]
     Indication: COLON CANCER
     Route: 048
     Dates: start: 20090625, end: 20090910
  2. NEXIUM [Concomitant]
     Route: 048
     Dates: start: 20090601
  3. EXFORGE [Concomitant]
     Route: 048
     Dates: start: 20090601
  4. HYDROCHLOROTHIAZIDE [Concomitant]
     Indication: BLOOD PRESSURE
     Route: 048
     Dates: start: 20090601
  5. FERROUS SULFATE TAB [Concomitant]
     Indication: IRON DEFICIENCY
     Route: 048
     Dates: start: 20090601

REACTIONS (5)
  - ASTHENIA [None]
  - DEHYDRATION [None]
  - DIARRHOEA [None]
  - ENTEROCOLITIS INFECTIOUS [None]
  - HEPATIC STEATOSIS [None]
